FAERS Safety Report 10176558 (Version 1)
Quarter: 2014Q2

REPORT INFORMATION
  Report Type: Spontaneous
  Country: IT (occurrence: None)
  Receive Date: 20140514
  Receipt Date: 20140514
  Transmission Date: 20141212
  Serious: Yes (Other)
  Sender: FDA-Public Use
  Company Number: AUR-APL-2014-05528

PATIENT
  Age: 78 Year
  Sex: Female

DRUGS (3)
  1. HYDROCHLOROTHIAZIDE W/IRBESARTAN [Suspect]
     Indication: PRODUCT USED FOR UNKNOWN INDICATION
     Dosage: 12.5 MG/ 300 MG, 1X/DAY, UNKNOWN
  2. ATENOLOL (ATENOLOL) [Concomitant]
  3. REPAGLINIDE (REPAGLINIDE) [Concomitant]

REACTIONS (2)
  - Pruritus [None]
  - Purpura [None]
